FAERS Safety Report 5292173-6 (Version None)
Quarter: 2007Q2

REPORT INFORMATION
  Report Type: 
  Country: None (occurrence: None)
  Receive Date: 20070410
  Receipt Date: 20070403
  Transmission Date: 20071010
  Serious: Yes (Death, Other)
  Sender: FDA-Public Use
  Company Number: JP-ELI_LILLY_AND_COMPANY-JP200703003554

PATIENT
  Age: 49 Year
  Sex: Male
  Weight: 75 kg

DRUGS (10)
  1. HUMALOG MIX 50/50 [Suspect]
     Indication: DIABETES MELLITUS
     Dosage: 50 IU, UNK
     Route: 058
     Dates: start: 20060425, end: 20060724
  2. HUMALOG MIX 50/50 [Suspect]
     Dosage: 28 IU, UNK
     Route: 058
     Dates: start: 20060725, end: 20061023
  3. HUMALOG MIX 50/50 [Suspect]
     Dosage: 26 IU, UNK
     Route: 058
     Dates: start: 20061024, end: 20061123
  4. HUMALOG MIX 50/50 [Suspect]
     Dosage: 40 IU, UNK
     Route: 058
     Dates: start: 20061124, end: 20061221
  5. HUMALOG MIX 50/50 [Suspect]
     Dosage: 18 IU, UNK
     Route: 058
     Dates: start: 20061222
  6. ASCATE [Concomitant]
     Dosage: 300 MG, DAILY (1/D)
     Route: 048
     Dates: start: 20060425
  7. MICARDIS [Concomitant]
     Dosage: 40 MG, DAILY (1/D)
     Route: 048
     Dates: start: 20060425
  8. CORINAEL [Concomitant]
     Dosage: 40 MG, DAILY (1/D)
     Route: 048
     Dates: start: 20060425
  9. LIPITOR [Concomitant]
     Dosage: 10 MG, DAILY (1/D)
     Route: 048
     Dates: start: 20060425
  10. ACTOS [Concomitant]
     Dosage: 15 MG, DAILY (1/D)
     Route: 048
     Dates: start: 20061124

REACTIONS (3)
  - DEATH [None]
  - HYPOGLYCAEMIA [None]
  - LOSS OF CONSCIOUSNESS [None]
